FAERS Safety Report 9336764 (Version 1)
Quarter: 2013Q2

REPORT INFORMATION
  Report Type: Spontaneous
  Country: CH (occurrence: CH)
  Receive Date: 20130607
  Receipt Date: 20130607
  Transmission Date: 20140414
  Serious: Yes (Other)
  Sender: FDA-Public Use
  Company Number: PHHY2013CH056366

PATIENT
  Age: 49 Year
  Sex: Male

DRUGS (7)
  1. ITRACONAZOLE [Suspect]
     Indication: TRICHOPHYTIC GRANULOMA
     Dosage: 100 MG, BID
     Route: 048
  2. ITRACONAZOLE [Interacting]
     Dosage: 300 MG DAILY
     Route: 048
  3. TACROLIMUS [Interacting]
     Indication: IMMUNOSUPPRESSION
  4. RIFAMPICIN [Interacting]
     Indication: STAPHYLOCOCCAL SEPSIS
  5. PREDNISONE [Concomitant]
  6. AZATHIOPRINE [Concomitant]
  7. FLOXACILLIN [Concomitant]

REACTIONS (3)
  - Staphylococcal sepsis [Unknown]
  - Sporotrichosis [Unknown]
  - Drug interaction [Unknown]
